FAERS Safety Report 10232789 (Version 2)
Quarter: 2014Q2

REPORT INFORMATION
  Report Type: Spontaneous
  Country: DE (occurrence: None)
  Receive Date: 20140610
  Receipt Date: 20140626
  Transmission Date: 20141212
  Serious: Yes (Other)
  Sender: FDA-Public Use
  Company Number: AUR-APL-2014-06179

PATIENT
  Age: 73 Year
  Sex: Male

DRUGS (4)
  1. OLANZAPINE 20MG (OLANZAPINE) UNKNOWN, 20MG [Suspect]
     Indication: PRODUCT USED FOR UNKNOWN INDICATION
     Route: 048
     Dates: start: 201308, end: 20140114
  2. ERGENYL (VALPROATE SODIUM) [Concomitant]
  3. RAMIPRIL (RAMIPRIL) [Concomitant]
  4. HYDROCHLOROTHIAZIDE (HYDROCHLOROTHIAZIDE) [Concomitant]

REACTIONS (14)
  - Disseminated intravascular coagulation [None]
  - Hyperthermia [None]
  - Heart rate increased [None]
  - Oxygen saturation decreased [None]
  - Multi-organ failure [None]
  - Unresponsive to stimuli [None]
  - Renal failure acute [None]
  - Liver injury [None]
  - Hypotension [None]
  - Ischaemic gastritis [None]
  - Upper gastrointestinal haemorrhage [None]
  - Gastric perforation [None]
  - Drug screen positive [None]
  - Camptocormia [None]
